FAERS Safety Report 7581803-1 (Version None)
Quarter: 2011Q2

REPORT INFORMATION
  Report Type: 
  Country: None (occurrence: None)
  Receive Date: 20110629
  Receipt Date: 20110621
  Transmission Date: 20111010
  Serious: Yes (Hospitalization, Other)
  Sender: FDA-Public Use
  Company Number: US-GENENTECH-320579

PATIENT
  Sex: Male
  Weight: 100.91 kg

DRUGS (8)
  1. SIMVASTATIN [Concomitant]
     Indication: PRODUCT USED FOR UNKNOWN INDICATION
     Dosage: UNK
     Dates: start: 20100726, end: 20110114
  2. RITUXAN [Suspect]
     Dosage: 375 MG/M2, UNK
     Route: 042
     Dates: start: 20101215, end: 20101215
  3. VINCRISTINE [Suspect]
     Indication: MANTLE CELL LYMPHOMA
     Dosage: UNK
     Dates: start: 20070801, end: 20071121
  4. DEXAMETHASONE [Suspect]
     Indication: MANTLE CELL LYMPHOMA
     Dosage: UNK
     Dates: start: 20070801, end: 20071122
  5. VELCADE [Suspect]
     Indication: MANTLE CELL LYMPHOMA
     Dosage: UNK UNK, UNKNOWN
     Route: 065
     Dates: start: 20070801, end: 20071122
  6. RITUXAN [Suspect]
     Indication: MANTLE CELL LYMPHOMA
     Dosage: 375 MG/M2, UNKNOWN
     Route: 065
     Dates: start: 20071201, end: 20080101
  7. CYCLOPHOSPHAMIDE [Suspect]
     Indication: MANTLE CELL LYMPHOMA
     Dosage: UNK
     Dates: start: 20070801, end: 20071122
  8. DOXORUBICIN HCL [Suspect]
     Indication: MANTLE CELL LYMPHOMA
     Dosage: UNK
     Dates: start: 20070801, end: 20071120

REACTIONS (1)
  - T-CELL LYMPHOMA [None]
